FAERS Safety Report 19953224 (Version 1)
Quarter: 2021Q4

REPORT INFORMATION
  Report Type: Spontaneous
  Country: DE (occurrence: DE)
  Receive Date: 20211014
  Receipt Date: 20211014
  Transmission Date: 20220303
  Serious: Yes (Hospitalization)
  Sender: FDA-Public Use
  Company Number: DE-ADRED-06675-01

PATIENT
  Age: 63 Year
  Sex: Male
  Weight: 90 kg

DRUGS (4)
  1. IBUPROFEN [Suspect]
     Active Substance: IBUPROFEN
     Indication: Product used for unknown indication
     Dosage: 400 MILLIGRAM (400 MG, EIN BIS DREI MAL T?GLICH IN DER LETZTEN WOCHE, TABLETTEN)
     Route: 048
  2. NICOTINELL [Concomitant]
     Active Substance: NICOTINE
     Dosage: T?GLICH, PFLASTER TRANSDERMAL
     Route: 062
  3. ASCORBIC ACID\FERROUS SULFATE\SODIUM BICARBONATE [Concomitant]
     Active Substance: ASCORBIC ACID\FERROUS SULFATE\SODIUM BICARBONATE
     Dosage: 100 MILLIGRAM, QD /100 MG, 1-0-0-0, TABLETTEN
     Route: 048
  4. POTASSIUM CHLORIDE [Concomitant]
     Active Substance: POTASSIUM CHLORIDE
     Dosage: 2-2-2-0, TABLETTEN
     Route: 048

REACTIONS (6)
  - Contraindicated product administered [Unknown]
  - Haematuria [Unknown]
  - Product prescribing error [Unknown]
  - Nocturia [Unknown]
  - Oedema peripheral [Unknown]
  - General physical health deterioration [Unknown]
